FAERS Safety Report 5556921-X (Version None)
Quarter: 2007Q4

REPORT INFORMATION
  Report Type: 
  Country: None (occurrence: None)
  Receive Date: 20071211
  Receipt Date: 20071211
  Transmission Date: 20080405
  Serious: No
  Sender: FDA-Public Use
  Company Number: None

PATIENT

DRUGS (1)
  1. BETAMETHASONE (COMPOUNDED) [Suspect]
     Dosage: MAY 6 OR MORE (HAVING 2 SHOTS FOR EVERY VISIT)

REACTIONS (5)
  - ADVERSE DRUG REACTION [None]
  - BONE PAIN [None]
  - DISCOMFORT [None]
  - PHARMACEUTICAL PRODUCT COMPLAINT [None]
  - VAGINAL PAIN [None]
